FAERS Safety Report 12817627 (Version 1)
Quarter: 2016Q4

REPORT INFORMATION
  Report Type: Spontaneous
  Country: US (occurrence: US)
  Receive Date: 20161006
  Receipt Date: 20161006
  Transmission Date: 20170207
  Serious: No
  Sender: FDA-Public Use
  Company Number: US-ELI_LILLY_AND_COMPANY-US201609007043

PATIENT
  Sex: Male

DRUGS (18)
  1. ALBUTEROL SULFATE. [Concomitant]
     Active Substance: ALBUTEROL SULFATE
     Dosage: 3 ML, PRN EVERY 4 HRS
     Route: 055
  2. ASPIR 81 [Concomitant]
     Dosage: 81 MG, QD
     Route: 048
  3. NASONEX [Concomitant]
     Active Substance: MOMETASONE FUROATE
     Dosage: UNK, QD: 2 SPRAYS IN EACH NOSTRIL
     Route: 045
  4. SIMVASTATIN. [Concomitant]
     Active Substance: SIMVASTATIN
     Dosage: 20 MG, EACH EVENING (ONE-HALF TABLET)
     Route: 048
  5. LYRICA [Concomitant]
     Active Substance: PREGABALIN
     Dosage: 100 MG, EACH EVENING (AT BEDTIME)
     Route: 065
  6. SYMBICORT [Concomitant]
     Active Substance: BUDESONIDE\FORMOTEROL FUMARATE DIHYDRATE
     Dosage: UNK, BID: 2 PUFFS
     Route: 055
  7. ABTEI MAGNESIUM [Concomitant]
     Dosage: 250 MG, QD WITH MEAL
     Route: 048
  8. FISH OIL [Concomitant]
     Active Substance: FISH OIL
     Dosage: 435 MG, QD
     Route: 048
  9. MORPHINE SULFATE. [Concomitant]
     Active Substance: MORPHINE SULFATE
     Dosage: 15 MG, BID AS NEEDED
     Route: 048
     Dates: start: 20160818
  10. MS CONTIN [Concomitant]
     Active Substance: MORPHINE SULFATE
     Dosage: 30 MG, TID
     Route: 048
     Dates: start: 20160821
  11. PROVENTIL HFA                      /00139501/ [Concomitant]
     Dosage: UNK, PRN: 2 PUFFS EVERY 4 HRS
     Route: 055
  12. AOV VITAMIN D3 [Concomitant]
     Dosage: 2000 U, QD
     Route: 048
  13. MONTELUKAST SODIUM. [Concomitant]
     Active Substance: MONTELUKAST SODIUM
     Dosage: 10 MG, EACH EVENING
     Route: 048
  14. CEPHALEXIN MONOHYDRATE. [Suspect]
     Active Substance: CEPHALEXIN MONOHYDRATE
     Indication: PRODUCT USED FOR UNKNOWN INDICATION
     Dosage: 1 DF, UNKNOWN
     Route: 065
  15. MIRALAX [Concomitant]
     Active Substance: POLYETHYLENE GLYCOL 3350
     Dosage: UNK, QD: 1 PACKET MIXED WITH 8 OUNCES OF FLUID
     Route: 048
  16. LORAZEPAM. [Concomitant]
     Active Substance: LORAZEPAM
     Dosage: UNK, TID: .5 TABLET IN MORNING AND NOON, AND 2 TABS AT BEDTIME
     Route: 065
  17. DETROL LA [Concomitant]
     Active Substance: TOLTERODINE TARTRATE
     Dosage: 4 MG, QD
     Route: 048
  18. FLAXSEED [Concomitant]
     Active Substance: FLAX SEED
     Dosage: 1000 MG, QD
     Route: 048

REACTIONS (1)
  - Urticaria [Unknown]
